FAERS Safety Report 6164349-7 (Version None)
Quarter: 2009Q2

REPORT INFORMATION
  Report Type: 
  Country: None (occurrence: None)
  Receive Date: 20090420
  Receipt Date: 20090407
  Transmission Date: 20091009
  Serious: Yes (Hospitalization)
  Sender: FDA-Public Use
  Company Number: DSA_33346_2009

PATIENT
  Sex: Male

DRUGS (7)
  1. MONO-TILDIEM (MONO-TILDIEM - DILTIAZEM HYDROCHLORIDE (SLOW RELEASE)) 3 [Suspect]
     Indication: DRUG USE FOR UNKNOWN INDICATION
     Dosage: (300 MG QD ORAL)
     Route: 048
     Dates: end: 20090210
  2. CORDARONE [Suspect]
     Indication: ATRIAL FIBRILLATION
     Dosage: (200 MG QD ORAL)
     Route: 048
  3. RAMIPRIL [Concomitant]
  4. ESIDREX /00022001/ [Concomitant]
  5. DIAMICRON [Concomitant]
  6. METFORMIN HCL [Concomitant]
  7. PREVISCAN /00789001/ [Concomitant]

REACTIONS (8)
  - ANAEMIA MACROCYTIC [None]
  - DRUG INTERACTION [None]
  - DYSSTASIA [None]
  - FALL [None]
  - GAIT DISTURBANCE [None]
  - HELICOBACTER GASTRITIS [None]
  - HYPERTENSION [None]
  - VITAMIN B12 DEFICIENCY [None]
